FAERS Safety Report 5341256-0 (Version None)
Quarter: 2007Q2

REPORT INFORMATION
  Report Type: 
  Country: None (occurrence: None)
  Receive Date: 20070404
  Receipt Date: 20061221
  Transmission Date: 20071010
  Serious: Yes (Hospitalization)
  Sender: FDA-Public Use
  Company Number: 2006155497

PATIENT
  Sex: Female

DRUGS (3)
  1. GEODON [Suspect]
  2. EFFEXOR [Concomitant]
  3. TRILEPTAL [Concomitant]

REACTIONS (3)
  - AKATHISIA [None]
  - CHEST PAIN [None]
  - TREMOR [None]
